FAERS Safety Report 19264542 (Version 1)
Quarter: 2021Q2

REPORT INFORMATION
  Report Type: Spontaneous
  Country: US (occurrence: US)
  Receive Date: 20210517
  Receipt Date: 20210517
  Transmission Date: 20210717
  Serious: Yes (Other)
  Sender: FDA-Public Use
  Company Number: None

PATIENT
  Age: 32 Year
  Sex: Male
  Weight: 90.72 kg

DRUGS (8)
  1. PANTAPRAZOLE [Concomitant]
     Active Substance: PANTOPRAZOLE SODIUM
  2. DEPAKOTE [Suspect]
     Active Substance: DIVALPROEX SODIUM
     Dosage: ?          QUANTITY:60 PILLS;OTHER FREQUENCY: 1 PILL QD AT LUNC;?
     Route: 048
  3. CLONAZAPAM [Concomitant]
     Active Substance: CLONAZEPAM
  4. ZOLOFT [Concomitant]
     Active Substance: SERTRALINE HYDROCHLORIDE
  5. NASAL SPRAY [Concomitant]
     Active Substance: UNSPECIFIED INGREDIENT
  6. LORATINE [Concomitant]
  7. ABILIFY [Concomitant]
     Active Substance: ARIPIPRAZOLE
  8. FENOFIRN [Concomitant]

REACTIONS (1)
  - Enuresis [None]
